FAERS Safety Report 15796478 (Version 2)
Quarter: 2019Q1

REPORT INFORMATION
  Report Type: Spontaneous
  Country: US (occurrence: US)
  Receive Date: 20190108
  Receipt Date: 20190220
  Transmission Date: 20190417
  Serious: No
  Sender: FDA-Public Use
  Company Number: US-HTU-2017US017065

PATIENT
  Sex: Female

DRUGS (2)
  1. VALCHLOR [Suspect]
     Active Substance: MECHLORETHAMINE
     Dosage: UNK, QOD
     Route: 061
  2. VALCHLOR [Suspect]
     Active Substance: MECHLORETHAMINE
     Indication: MYCOSIS FUNGOIDES
     Dosage: APPLY QD
     Route: 061
     Dates: start: 20171120

REACTIONS (5)
  - Skin discolouration [Unknown]
  - Skin irritation [Recovered/Resolved]
  - Application site pain [Recovered/Resolved]
  - Burning sensation [Unknown]
  - Erythema [Unknown]
